FAERS Safety Report 23795446 (Version 1)
Quarter: 2024Q2

REPORT INFORMATION
  Report Type: Spontaneous
  Country: US (occurrence: US)
  Receive Date: 20240429
  Receipt Date: 20240429
  Transmission Date: 20240715
  Serious: No
  Sender: FDA-Public Use
  Company Number: US-INCYTE CORPORATION-2024IN003608

PATIENT

DRUGS (1)
  1. OPZELURA [Suspect]
     Active Substance: RUXOLITINIB PHOSPHATE
     Indication: Vitiligo
     Dosage: UNK UNK, QD
     Route: 065

REACTIONS (4)
  - Off label use [Unknown]
  - Vitiligo [Unknown]
  - Therapeutic response delayed [Unknown]
  - Product expiration date issue [Unknown]
